FAERS Safety Report 15384568 (Version 3)
Quarter: 2020Q4

REPORT INFORMATION
  Report Type: Report from Study
  Country: US (occurrence: US)
  Receive Date: 20180914
  Receipt Date: 20201208
  Transmission Date: 20210113
  Serious: Yes (Hospitalization, Other)
  Sender: FDA-Public Use
  Company Number: US-AMGEN-USASP2018125274

PATIENT
  Age: 56 Year
  Sex: Female

DRUGS (8)
  1. VITAMIN D3 [Concomitant]
     Active Substance: CHOLECALCIFEROL
     Dosage: UNK
  2. HYDROCHLOROTHIAZIDE. [Concomitant]
     Active Substance: HYDROCHLOROTHIAZIDE
     Dosage: 200 MILLIGRAM, BID
  3. LEVOTHYROXIN [Concomitant]
     Active Substance: LEVOTHYROXINE
     Indication: THYROID DISORDER
     Dosage: 100 MICROGRAM, QD
  4. ENBREL [Suspect]
     Active Substance: ETANERCEPT
     Indication: RHEUMATOID ARTHRITIS
     Dosage: UNK, QWK
     Route: 065
     Dates: start: 201804, end: 2018
  5. ENBREL [Suspect]
     Active Substance: ETANERCEPT
     Dosage: 50 MILLIGRAM, QWK
     Route: 065
     Dates: start: 2018
  6. MAXAIR [Concomitant]
     Active Substance: PIRBUTEROL ACETATE
     Indication: ASTHMA
     Dosage: UNK
  7. SINGULAIR [Concomitant]
     Active Substance: MONTELUKAST SODIUM
     Indication: ASTHMA
     Dosage: UNK
  8. PROAIR HFA [Concomitant]
     Active Substance: ALBUTEROL SULFATE
     Indication: ASTHMA
     Dosage: UNK

REACTIONS (9)
  - Mobility decreased [Unknown]
  - Arthralgia [Not Recovered/Not Resolved]
  - Gait inability [Unknown]
  - Wrong technique in product usage process [Unknown]
  - Rheumatoid arthritis [Unknown]
  - Accidental exposure to product [Unknown]
  - Drug dose omission by device [Unknown]
  - Pain in extremity [Not Recovered/Not Resolved]
  - Asthma [Unknown]

NARRATIVE: CASE EVENT DATE: 2018
